FAERS Safety Report 6703255-3 (Version None)
Quarter: 2010Q2

REPORT INFORMATION
  Report Type: 
  Country: None (occurrence: None)
  Receive Date: 20100430
  Receipt Date: 20100419
  Transmission Date: 20101027
  Serious: No
  Sender: FDA-Public Use
  Company Number: US-B.I. PHARMACEUTICALS,INC./RIDGEFIELD-2010-BP-04532BP

PATIENT
  Sex: Male

DRUGS (13)
  1. SPIRIVA [Suspect]
     Indication: CHRONIC OBSTRUCTIVE PULMONARY DISEASE
     Dosage: 18 MCG
     Route: 055
     Dates: start: 20091101
  2. ALBUTEROL [Suspect]
     Indication: CHRONIC OBSTRUCTIVE PULMONARY DISEASE
  3. PULMICORT [Suspect]
     Indication: CHRONIC OBSTRUCTIVE PULMONARY DISEASE
  4. IPRATROPIUM [Suspect]
     Indication: CHRONIC OBSTRUCTIVE PULMONARY DISEASE
  5. OXYGEN [Concomitant]
     Indication: CHRONIC OBSTRUCTIVE PULMONARY DISEASE
  6. OMEPRAZOLE [Concomitant]
     Indication: GASTRIC DISORDER
  7. ASPIRIN [Concomitant]
     Indication: PROPHYLAXIS
  8. GABAPENTIN [Concomitant]
     Indication: ARTHRALGIA
  9. SULINDAC [Concomitant]
     Indication: ARTHRALGIA
  10. LORATADINE [Concomitant]
     Indication: SINUS DISORDER
  11. TRIAMTERENE [Concomitant]
     Indication: HYPERTENSION
  12. DOCUSATE SODIUM [Concomitant]
     Indication: CONSTIPATION
  13. BISACODYL [Concomitant]
     Indication: CONSTIPATION

REACTIONS (2)
  - CANDIDIASIS [None]
  - HYPOTHYROIDISM [None]
